FAERS Safety Report 16453547 (Version 1)
Quarter: 2019Q2

REPORT INFORMATION
  Report Type: Spontaneous
  Country: US (occurrence: US)
  Receive Date: 20190619
  Receipt Date: 20190619
  Transmission Date: 20190711
  Serious: No
  Sender: FDA-Public Use
  Company Number: US-ROCHE-2264272

PATIENT

DRUGS (6)
  1. REMICADE [Concomitant]
     Active Substance: INFLIXIMAB
     Dosage: INFUSION
     Route: 065
  2. METHOTREXATE. [Concomitant]
     Active Substance: METHOTREXATE
  3. ENBREL [Concomitant]
     Active Substance: ETANERCEPT
     Route: 065
  4. ORENCIA [Concomitant]
     Active Substance: ABATACEPT
  5. XELJANZ XR [Concomitant]
     Active Substance: TOFACITINIB CITRATE
     Route: 048
  6. ACTEMRA [Suspect]
     Active Substance: TOCILIZUMAB
     Indication: RHEUMATOID ARTHRITIS
     Route: 065

REACTIONS (1)
  - Liver function test increased [Unknown]
